FAERS Safety Report 5476119-3 (Version None)
Quarter: 2007Q4

REPORT INFORMATION
  Report Type: 
  Country: None (occurrence: None)
  Receive Date: 20071003
  Receipt Date: 20070924
  Transmission Date: 20080405
  Serious: Yes (Other)
  Sender: FDA-Public Use
  Company Number: US-ELI_LILLY_AND_COMPANY-US200709005179

PATIENT
  Sex: Male

DRUGS (1)
  1. CYMBALTA [Suspect]
     Dosage: 150MG
     Dates: start: 20070601

REACTIONS (3)
  - GAIT DISTURBANCE [None]
  - LOSS OF CONSCIOUSNESS [None]
  - OVERDOSE [None]
